FAERS Safety Report 4723908-6 (Version None)
Quarter: 2005Q3

REPORT INFORMATION
  Report Type: 
  Country: None (occurrence: None)
  Receive Date: 20050722
  Receipt Date: 32000701
  Transmission Date: 20060218
  Serious: Yes (Other)
  Sender: FDA-Public Use
  Company Number: 2005034733

PATIENT
  Age: 12 Year
  Sex: Female

DRUGS (3)
  1. GEODON [Suspect]
     Indication: TIC
     Dosage: 40 MG (40 MG, 1 IN 1 D) , ORAL
     Route: 048
     Dates: start: 20050121, end: 20050121
  2. ZOLOFT [Suspect]
     Indication: ILL-DEFINED DISORDER
  3. PROZAC [Suspect]
     Indication: DEPRESSION
     Dosage: 30 MG (10 MG, 1 IN1 D), ORAL
     Route: 048
     Dates: start: 20040827

REACTIONS (6)
  - ABDOMINAL PAIN UPPER [None]
  - DISCOMFORT [None]
  - DYSTONIA [None]
  - FEAR [None]
  - PAIN [None]
  - TREATMENT NONCOMPLIANCE [None]
